FAERS Safety Report 4963387-7 (Version None)
Quarter: 2006Q2

REPORT INFORMATION
  Report Type: 
  Country: None (occurrence: None)
  Receive Date: 20060405
  Receipt Date: 20060323
  Transmission Date: 20061013
  Serious: Yes (Death)
  Sender: FDA-Public Use
  Company Number: IL-NOVOPROD-251868

PATIENT
  Sex: Female

DRUGS (2)
  1. NOVOSEVEN [Suspect]
     Indication: HAEMORRHAGE CONTROL
     Dosage: 4.8 MG
     Dates: start: 20060321, end: 20060321
  2. PLATELETS [Concomitant]
     Indication: HAEMORRHAGE CONTROL

REACTIONS (1)
  - DEATH [None]
